FAERS Safety Report 4500419-4 (Version None)
Quarter: 2004Q3

REPORT INFORMATION
  Report Type: 
  Country: None (occurrence: None)
  Receive Date: 20040928
  Receipt Date: 20040802
  Transmission Date: 20050211
  Serious: No
  Sender: FDA-Public Use
  Company Number: 04P-163-0268691-00

PATIENT
  Age: 70 Year
  Sex: Female
  Weight: 61.6892 kg

DRUGS (8)
  1. HUMIRA [Suspect]
     Indication: RHEUMATOID ARTHRITIS
     Dosage: 40 MG 2 IN 1 M, SUBCUTANEOUS
     Route: 058
     Dates: start: 20040301
  2. DIGOXIN [Concomitant]
  3. PREDNISONE [Concomitant]
  4. HYZAAR [Concomitant]
  5. DILTIAZEM [Concomitant]
  6. FUROSEMIDE [Concomitant]
  7. ALENDRONATE SODIUM [Concomitant]
  8. METHOTREXATE [Concomitant]

REACTIONS (1)
  - INJECTION SITE PAIN [None]
